FAERS Safety Report 5532955-6 (Version None)
Quarter: 2007Q4

REPORT INFORMATION
  Report Type: 
  Country: None (occurrence: None)
  Receive Date: 20071129
  Receipt Date: 20071129
  Transmission Date: 20080405
  Serious: Yes (Life-Threatening)
  Sender: FDA-Public Use
  Company Number: None

PATIENT
  Age: 44 Year
  Sex: Female

DRUGS (1)
  1. CHANTIX [Suspect]
     Indication: SMOKING CESSATION THERAPY
     Dates: start: 20071010, end: 20071110

REACTIONS (3)
  - INTENTIONAL SELF-INJURY [None]
  - PERSONALITY CHANGE [None]
  - SUICIDE ATTEMPT [None]
